FAERS Safety Report 19750396 (Version 1)
Quarter: 2021Q3

REPORT INFORMATION
  Report Type: Spontaneous
  Country: US (occurrence: US)
  Receive Date: 20210826
  Receipt Date: 20210826
  Transmission Date: 20211014
  Serious: No
  Sender: FDA-Public Use
  Company Number: None

PATIENT
  Age: 65 Year
  Sex: Female
  Weight: 48 kg

DRUGS (8)
  1. ONDANSETRON 4MG [Concomitant]
     Active Substance: ONDANSETRON
  2. LIDODERM [Concomitant]
     Active Substance: LIDOCAINE
  3. AFINITOR [Suspect]
     Active Substance: EVEROLIMUS
     Indication: THYROID CANCER
     Route: 048
     Dates: start: 20210805
  4. VITAMIN B12 100MCG [Concomitant]
  5. VENTOLIN HFA [Concomitant]
     Active Substance: ALBUTEROL SULFATE
  6. ELIQUIS [Concomitant]
     Active Substance: APIXABAN
  7. FUROSEMIDE 20MG [Concomitant]
     Active Substance: FUROSEMIDE
  8. GABAPENTIN 600MG [Concomitant]
     Active Substance: GABAPENTIN

REACTIONS (2)
  - Onychalgia [None]
  - Alopecia [None]

NARRATIVE: CASE EVENT DATE: 20210826
